FAERS Safety Report 9426910 (Version 1)
Quarter: 2013Q3

REPORT INFORMATION
  Report Type: Spontaneous
  Country: US (occurrence: None)
  Receive Date: 20130729
  Receipt Date: 20130729
  Transmission Date: 20140515
  Serious: Yes (Life-Threatening)
  Sender: FDA-Public Use
  Company Number: None

PATIENT
  Age: 8 Year
  Sex: Female
  Weight: 16.1 kg

DRUGS (1)
  1. NEORAL [Suspect]

REACTIONS (2)
  - Drug level changed [None]
  - Product substitution issue [None]
